FAERS Safety Report 19912724 (Version 1)
Quarter: 2021Q4

REPORT INFORMATION
  Report Type: Spontaneous
  Country: US (occurrence: US)
  Receive Date: 20211004
  Receipt Date: 20211004
  Transmission Date: 20220303
  Serious: Yes (Hospitalization, Other)
  Sender: FDA-Public Use
  Company Number: None

PATIENT
  Age: 87 Year
  Sex: Male
  Weight: 78.75 kg

DRUGS (5)
  1. REGEN-COV [Suspect]
     Active Substance: CASIRIVIMAB\IMDEVIMAB
     Indication: COVID-19
     Dosage: ?          OTHER FREQUENCY:ONCE;
     Route: 041
     Dates: start: 20210923, end: 20210923
  2. TAMSULOSIN [Concomitant]
     Active Substance: TAMSULOSIN
     Dates: start: 20131023
  3. ATORVASTATIN [Concomitant]
     Active Substance: ATORVASTATIN
     Dates: start: 20190603
  4. AMLODIPINE BESYLATE [Concomitant]
     Active Substance: AMLODIPINE BESYLATE
     Dates: start: 20180111
  5. ASPIRIN [Concomitant]
     Active Substance: ASPIRIN
     Dates: start: 20171124

REACTIONS (7)
  - Cough [None]
  - Fatigue [None]
  - Condition aggravated [None]
  - Asthenia [None]
  - Nausea [None]
  - Pneumonia [None]
  - Fibrin D dimer decreased [None]

NARRATIVE: CASE EVENT DATE: 20210928
